FAERS Safety Report 16327682 (Version 1)
Quarter: 2019Q2

REPORT INFORMATION
  Report Type: Spontaneous
  Country: US (occurrence: US)
  Receive Date: 20190517
  Receipt Date: 20190517
  Transmission Date: 20190711
  Serious: Yes (Other)
  Sender: FDA-Public Use
  Company Number: PHEH2019US021248

PATIENT
  Sex: Male

DRUGS (1)
  1. TASIGNA [Suspect]
     Active Substance: NILOTINIB
     Indication: CHRONIC MYELOID LEUKAEMIA
     Dosage: 01 DF, BID
     Route: 065

REACTIONS (43)
  - Atrial fibrillation [Unknown]
  - Sleep apnoea syndrome [Unknown]
  - Upper respiratory tract infection [Unknown]
  - Hypercholesterolaemia [Unknown]
  - Anxiety [Unknown]
  - Angina pectoris [Unknown]
  - Sinus bradycardia [Unknown]
  - Osteoarthritis [Unknown]
  - Periodontal disease [Unknown]
  - Restless legs syndrome [Unknown]
  - Peripheral vascular disorder [Unknown]
  - Depression [Unknown]
  - Impaired fasting glucose [Unknown]
  - Vitamin D deficiency [Unknown]
  - Myopathy [Unknown]
  - Herpes zoster [Unknown]
  - Hypertriglyceridaemia [Unknown]
  - Coronary artery disease [Unknown]
  - Polyarteritis nodosa [Unknown]
  - Carpal tunnel syndrome [Unknown]
  - Otitis externa [Unknown]
  - Hyperlipidaemia [Unknown]
  - Wheezing [Unknown]
  - Fatigue [Unknown]
  - Dyspnoea [Unknown]
  - Staphylococcal infection [Unknown]
  - Hypertensive urgency [Unknown]
  - Thrombocytopenia [Unknown]
  - Cough [Unknown]
  - Anaemia [Unknown]
  - Cellulitis [Unknown]
  - Vitamin B12 deficiency [Unknown]
  - Arthralgia [Unknown]
  - Dizziness [Unknown]
  - Retinal detachment [Unknown]
  - Transient ischaemic attack [Unknown]
  - Rectal fissure [Unknown]
  - Fibromyalgia [Unknown]
  - Obesity [Unknown]
  - Diarrhoea [Unknown]
  - Neck pain [Unknown]
  - Hypothyroidism [Unknown]
  - Chest pain [Unknown]
